FAERS Safety Report 7764801-4 (Version None)
Quarter: 2011Q3

REPORT INFORMATION
  Report Type: 
  Country: None (occurrence: None)
  Receive Date: 20110921
  Receipt Date: 20110912
  Transmission Date: 20111222
  Serious: Yes (Hospitalization, Other)
  Sender: FDA-Public Use
  Company Number: CA-GENENTECH-322468

PATIENT
  Sex: Male

DRUGS (17)
  1. METHYLPREDNISOLONE [Suspect]
     Indication: PREMEDICATION
     Dosage: 100 MG, UNK
     Route: 042
     Dates: start: 20110725, end: 20110725
  2. TYLENOL-500 [Concomitant]
     Indication: PREMEDICATION
     Dosage: 1000 MG, UNK
     Route: 048
  3. ACRIVASTINE [Concomitant]
     Indication: PREMEDICATION
  4. CALAMINE [Concomitant]
     Indication: PREMEDICATION
  5. ARAVA [Concomitant]
     Indication: RHEUMATOID ARTHRITIS
     Dosage: 20 MG, UNK
  6. CRESTOR [Concomitant]
     Indication: HYPERLIPIDAEMIA
  7. BENADRYL (CANADA) [Concomitant]
     Indication: PREMEDICATION
     Dosage: 50 MG, UNK
     Route: 048
  8. RITUXAN [Suspect]
     Indication: RHEUMATOID ARTHRITIS
     Dosage: 1000 MG, UNK
     Route: 042
     Dates: start: 20110725, end: 20110725
  9. CAMPHOR + MENTHOL [Concomitant]
     Indication: PREMEDICATION
  10. ZINC [Concomitant]
     Indication: PREMEDICATION
  11. CODEINE SULFATE [Concomitant]
     Indication: PREMEDICATION
  12. SODIUM CITRATE [Concomitant]
     Indication: PREMEDICATION
  13. RITUXAN [Suspect]
     Dosage: UNK
     Route: 042
  14. CALCIVIT D [Concomitant]
     Indication: OSTEOPOROSIS PROPHYLAXIS
  15. PREDNISONE [Concomitant]
     Indication: RHEUMATOID ARTHRITIS
     Dosage: 5 MG, BID
     Route: 048
  16. AMMONIUM CHLORIDE [Concomitant]
     Indication: PREMEDICATION
  17. ACTONEL [Concomitant]
     Indication: OSTEOPOROSIS PROPHYLAXIS

REACTIONS (2)
  - PANCREATITIS [None]
  - LOCALISED INFECTION [None]
